FAERS Safety Report 19525936 (Version 1)
Quarter: 2021Q3

REPORT INFORMATION
  Report Type: Report from Study
  Country: BG (occurrence: BG)
  Receive Date: 20210713
  Receipt Date: 20210713
  Transmission Date: 20211014
  Serious: Yes (Hospitalization)
  Sender: FDA-Public Use
  Company Number: BG-NOVOPROD-815474

PATIENT
  Age: 69 Year
  Sex: Female
  Weight: 75 kg

DRUGS (2)
  1. SEMAGLUTIDE 14 MG [Suspect]
     Active Substance: SEMAGLUTIDE
     Indication: TYPE 2 DIABETES MELLITUS
     Dosage: UNK, QD
     Route: 048
     Dates: start: 20210224, end: 20210502
  2. SEMAGLUTIDE 14 MG [Suspect]
     Active Substance: SEMAGLUTIDE
     Dosage: UNK UNK, QD
     Route: 048
     Dates: start: 20210510

REACTIONS (1)
  - Gallbladder disorder [Recovered/Resolved]

NARRATIVE: CASE EVENT DATE: 20210502
